FAERS Safety Report 18830736 (Version 1)
Quarter: 2021Q1

REPORT INFORMATION
  Report Type: Spontaneous
  Country: US (occurrence: US)
  Receive Date: 20210202
  Receipt Date: 20210202
  Transmission Date: 20210419
  Serious: No
  Sender: FDA-Public Use
  Company Number: None

PATIENT
  Age: 68 Year
  Sex: Female

DRUGS (14)
  1. LIDODERM [Concomitant]
     Active Substance: LIDOCAINE
  2. PERIDEX [Concomitant]
     Active Substance: CHLORHEXIDINE GLUCONATE
  3. CALCIUM 600+D [Concomitant]
     Active Substance: CALCIUM\VITAMIN D
  4. ONDANSETRON HCL [Concomitant]
     Active Substance: ONDANSETRON HYDROCHLORIDE
  5. XGEVA [Concomitant]
     Active Substance: DENOSUMAB
  6. FAMOTIDINE. [Concomitant]
     Active Substance: FAMOTIDINE
  7. XARELTO [Concomitant]
     Active Substance: RIVAROXABAN
  8. ACETAMINOPHEN. [Concomitant]
     Active Substance: ACETAMINOPHEN
  9. PROCHLORPERAZINE MALEATE. [Concomitant]
     Active Substance: PROCHLORPERAZINE MALEATE
  10. EVEROLIMUS 5 MG TABLET [Suspect]
     Active Substance: EVEROLIMUS
     Route: 048
  11. DEXAMETHASONE. [Concomitant]
     Active Substance: DEXAMETHASONE
  12. DOCUSATE SODIUM. [Concomitant]
     Active Substance: DOCUSATE SODIUM
  13. FULVESTRANT. [Concomitant]
     Active Substance: FULVESTRANT
  14. OXYCODONE HYDROCHLORIDE. [Concomitant]
     Active Substance: OXYCODONE HYDROCHLORIDE

REACTIONS (1)
  - Disease progression [None]

NARRATIVE: CASE EVENT DATE: 20210202
